FAERS Safety Report 15344681 (Version 1)
Quarter: 2018Q3

REPORT INFORMATION
  Report Type: Spontaneous
  Country: GB (occurrence: GB)
  Receive Date: 20180903
  Receipt Date: 20180903
  Transmission Date: 20181010
  Serious: Yes (Life-Threatening, Hospitalization, Other)
  Sender: FDA-Public Use
  Company Number: GB-PFIZER INC-2018347466

PATIENT
  Sex: Male

DRUGS (3)
  1. METHYLPREDNISOLONE SODIUM SUCCINATE. [Suspect]
     Active Substance: METHYLPREDNISOLONE SODIUM SUCCINATE
     Indication: ENCEPHALITIS AUTOIMMUNE
     Dosage: 1 G, UNK
     Route: 042
     Dates: start: 20170913, end: 201709
  2. PREDNISOLONE. [Suspect]
     Active Substance: PREDNISOLONE
     Indication: ENCEPHALITIS AUTOIMMUNE
     Dosage: 60 MG, DAILY (DOSE DECREASE BY 5MG EVERY WEEK)
     Route: 048
     Dates: start: 20170915
  3. BENEPALI [Suspect]
     Active Substance: ETANERCEPT
     Indication: ANKYLOSING SPONDYLITIS
     Dosage: 1, WEEKLY
     Route: 065
     Dates: start: 201701, end: 201708

REACTIONS (14)
  - Autism spectrum disorder [Recovered/Resolved]
  - Product use in unapproved indication [Unknown]
  - Disease recurrence [Not Recovered/Not Resolved]
  - Diabetes mellitus [Not Recovered/Not Resolved]
  - Ill-defined disorder [Recovered/Resolved]
  - Radiculopathy [Recovered/Resolved]
  - Cataract [Not Recovered/Not Resolved]
  - Ankylosing spondylitis [Recovered/Resolved]
  - Condition aggravated [Recovered/Resolved]
  - Product substitution issue [Unknown]
  - Pneumonia [Unknown]
  - Muscle twitching [Recovered/Resolved]
  - Pneumocystis jirovecii pneumonia [Not Recovered/Not Resolved]
  - Encephalitis autoimmune [Not Recovered/Not Resolved]

NARRATIVE: CASE EVENT DATE: 201701
